FAERS Safety Report 5232971-8 (Version None)
Quarter: 2007Q1

REPORT INFORMATION
  Report Type: 
  Country: None (occurrence: None)
  Receive Date: 20061204
  Receipt Date: 20061002
  Transmission Date: 20070707
  Serious: No
  Sender: FDA-Public Use
  Company Number: 2006-BP-11599BP

PATIENT
  Sex: Male

DRUGS (4)
  1. SPIRIVA [Suspect]
     Indication: PULMONARY FIBROSIS
     Dosage: 18 MCG (18 MCG),IH
     Route: 055
     Dates: start: 20060901, end: 20061001
  2. ZOCOR [Concomitant]
  3. ASPIRIN [Concomitant]
  4. MUCINEX [Concomitant]

REACTIONS (1)
  - CHEST DISCOMFORT [None]
